FAERS Safety Report 6682598-6 (Version None)
Quarter: 2010Q2

REPORT INFORMATION
  Report Type: 
  Country: None (occurrence: None)
  Receive Date: 20100414
  Receipt Date: 20100414
  Transmission Date: 20101027
  Serious: No
  Sender: FDA-Public Use
  Company Number: None

PATIENT
  Age: 71 Year
  Sex: Female
  Weight: 77.1115 kg

DRUGS (2)
  1. EVISTA [Suspect]
     Dosage: 1 TABLET DAILY
     Dates: start: 20100302, end: 20100305
  2. EVISTA [Suspect]
     Dosage: 1 TABLET DAILY
     Dates: start: 20100409, end: 20100409

REACTIONS (2)
  - DIARRHOEA [None]
  - VOMITING [None]
